FAERS Safety Report 19818468 (Version 1)
Quarter: 2021Q3

REPORT INFORMATION
  Report Type: Spontaneous
  Country: DK (occurrence: DK)
  Receive Date: 20210911
  Receipt Date: 20210911
  Transmission Date: 20211014
  Serious: Yes (Death)
  Sender: FDA-Public Use
  Company Number: NVSC2021DK206340

PATIENT
  Sex: Female

DRUGS (1)
  1. EXELON [Suspect]
     Active Substance: RIVASTIGMINE TARTRATE
     Dosage: 9.5 MG, QD (18 MG RIVASTIGMINE BASE (PATCH 10 (CM2))
     Route: 062

REACTIONS (4)
  - Rash erythematous [Unknown]
  - Blister [Unknown]
  - Cerebral thrombosis [Fatal]
  - Cerebral haemorrhage [Fatal]
